FAERS Safety Report 4787374-7 (Version None)
Quarter: 2005Q3

REPORT INFORMATION
  Report Type: 
  Country: None (occurrence: None)
  Receive Date: 20050926
  Receipt Date: 20040804
  Transmission Date: 20060218
  Serious: No
  Sender: FDA-Public Use
  Company Number: 216724

PATIENT
  Sex: Male

DRUGS (2)
  1. AVASTIN [Suspect]
     Indication: RENAL CELL CARCINOMA STAGE UNSPECIFIED
     Dosage: 5 MG/KG,; 10 MG/KG
  2. UNKNOWN MEDICATION (GENERIC COMPONENT(S) NOT KNOWN) [Concomitant]

REACTIONS (1)
  - PALMAR-PLANTAR ERYTHRODYSAESTHESIA SYNDROME [None]
